FAERS Safety Report 17218060 (Version 6)
Quarter: 2022Q2

REPORT INFORMATION
  Report Type: Report from Study
  Country: CN (occurrence: None)
  Receive Date: 20191231
  Receipt Date: 20220615
  Transmission Date: 20220721
  Serious: Yes (Hospitalization)
  Sender: FDA-Public Use
  Company Number: CN-ROCHE-2509942

PATIENT
  Age: 51 Year
  Sex: Female
  Weight: 58 kg

DRUGS (49)
  1. ALECTINIB [Suspect]
     Active Substance: ALECTINIB
     Indication: Non-small cell lung cancer
     Dosage: DOSE LAST STUDY DRUG ADMIN PRIOR AE: 450 MG?START AND END DATE OF MOST RECENT DOSE OF STUDY DRUG PRI
     Route: 048
     Dates: start: 20170208
  2. CEFMINOX SODIUM [Concomitant]
     Active Substance: CEFMINOX SODIUM
     Indication: Infection
     Dates: start: 20190221, end: 20190221
  3. CEFMINOX SODIUM [Concomitant]
     Active Substance: CEFMINOX SODIUM
     Indication: Post procedural infection
     Dates: start: 20190222, end: 20190224
  4. CEFMINOX SODIUM [Concomitant]
     Active Substance: CEFMINOX SODIUM
     Dates: start: 20210429, end: 20210429
  5. CEFMINOX SODIUM [Concomitant]
     Active Substance: CEFMINOX SODIUM
     Dates: start: 20210430, end: 20210502
  6. INSULIN NOS [Concomitant]
     Active Substance: INSULIN NOS
     Indication: Nutritional supplementation
     Dates: start: 20190221, end: 20190228
  7. INSULIN NOS [Concomitant]
     Active Substance: INSULIN NOS
     Dates: start: 20210501, end: 20210505
  8. POTASSIUM CHLORIDE [Concomitant]
     Active Substance: POTASSIUM CHLORIDE
     Indication: Nutritional supplementation
     Dates: start: 20190221, end: 20190228
  9. POTASSIUM CHLORIDE [Concomitant]
     Active Substance: POTASSIUM CHLORIDE
     Dates: start: 20210420, end: 20210422
  10. POTASSIUM CHLORIDE [Concomitant]
     Active Substance: POTASSIUM CHLORIDE
     Dates: start: 20210501, end: 20210505
  11. POTASSIUM CHLORIDE [Concomitant]
     Active Substance: POTASSIUM CHLORIDE
     Dates: start: 20210506, end: 20210508
  12. DEXTROSE [Concomitant]
     Active Substance: DEXTROSE
     Dates: start: 20190222, end: 20190222
  13. OXYCODONE HYDROCHLORIDE [Concomitant]
     Active Substance: OXYCODONE HYDROCHLORIDE
     Indication: Anaesthesia
     Dates: start: 20190222, end: 20190222
  14. OXYCODONE HYDROCHLORIDE [Concomitant]
     Active Substance: OXYCODONE HYDROCHLORIDE
     Dates: start: 20210430
  15. REMIFENTANIL HYDROCHLORIDE [Concomitant]
     Active Substance: REMIFENTANIL HYDROCHLORIDE
     Indication: Anaesthesia
     Dates: start: 20190222, end: 20190222
  16. SUFENTANIL CITRATE [Concomitant]
     Active Substance: SUFENTANIL CITRATE
     Indication: Analgesic therapy
     Dates: start: 20190222, end: 20190222
  17. COMPOUND GLYCYRRHIZA ORAL SOLUTION [Concomitant]
     Indication: Cough
     Dates: start: 20190225, end: 20190303
  18. GLUTATHIONE [Concomitant]
     Active Substance: GLUTATHIONE
     Indication: Hepatic function abnormal
     Dates: start: 20190222, end: 20190228
  19. ENOXAPARIN SODIUM [Concomitant]
     Active Substance: ENOXAPARIN SODIUM
     Indication: Thrombosis
     Dates: start: 20190224, end: 20190228
  20. IRON SUCROSE [Concomitant]
     Active Substance: IRON SUCROSE
     Indication: Anaemia
     Dates: start: 20190227, end: 20190227
  21. ZOMETA [Concomitant]
     Active Substance: ZOLEDRONIC ACID
     Dates: start: 20170123
  22. DEXAMETHASONE SODIUM PHOSPHATE [Concomitant]
     Active Substance: DEXAMETHASONE SODIUM PHOSPHATE
     Dates: start: 20170123
  23. CALCIUM CHLORIDE\POTASSIUM CHLORIDE\SODIUM CHLORIDE [Concomitant]
     Active Substance: CALCIUM CHLORIDE\POTASSIUM CHLORIDE\SODIUM CHLORIDE
     Dates: start: 20190221, end: 20190226
  24. PANTOPRAZOLE SODIUM [Concomitant]
     Active Substance: PANTOPRAZOLE SODIUM
     Dates: start: 20190222, end: 20190228
  25. ATROVENT [Concomitant]
     Active Substance: IPRATROPIUM BROMIDE
     Dates: start: 20190223, end: 20190228
  26. ZOLEDRONIC [Concomitant]
     Active Substance: ZOLEDRONIC ACID
     Dates: start: 20200420
  27. COENZYME Q-10;SODIUM CHLORIDE [Concomitant]
     Indication: Nutritional supplementation
     Dates: start: 20210420, end: 20210422
  28. OMEPRAZOLE [Concomitant]
     Active Substance: OMEPRAZOLE
     Dates: start: 20210420, end: 20210421
  29. TERBUTALINE SULFATE [Concomitant]
     Active Substance: TERBUTALINE SULFATE
     Dates: start: 20210428, end: 20210430
  30. TERBUTALINE SULFATE [Concomitant]
     Active Substance: TERBUTALINE SULFATE
     Dates: start: 20210501, end: 20210510
  31. BUDESONIDE [Concomitant]
     Active Substance: BUDESONIDE
     Dates: start: 20210428, end: 20210430
  32. BUDESONIDE [Concomitant]
     Active Substance: BUDESONIDE
     Dates: start: 20210501, end: 20210510
  33. DUPHALAC [Concomitant]
     Active Substance: LACTULOSE
     Dates: start: 20210429, end: 20210429
  34. LANSOPRAZOLE [Concomitant]
     Active Substance: LANSOPRAZOLE
     Dates: start: 20210430, end: 20210510
  35. AMBROXOL HYDROCHLORIDE [Concomitant]
     Active Substance: AMBROXOL HYDROCHLORIDE
     Dates: start: 20210430, end: 20210505
  36. SOMATOSTATIN [Concomitant]
     Active Substance: SOMATOSTATIN
     Dates: start: 20210430, end: 20210503
  37. DYNASTAT [Concomitant]
     Active Substance: PARECOXIB SODIUM
     Indication: Analgesic therapy
     Dates: start: 20210430, end: 20210430
  38. DYNASTAT [Concomitant]
     Active Substance: PARECOXIB SODIUM
     Dates: start: 20210503, end: 20210505
  39. SUFENTANIL CITRATE [Concomitant]
     Active Substance: SUFENTANIL CITRATE
     Indication: Postoperative analgesia
     Dates: start: 20210430
  40. EPHEDRINE HYDROCHLORIDE [Concomitant]
     Active Substance: EPHEDRINE HYDROCHLORIDE
     Dates: start: 20210420
  41. TIAN LI [Concomitant]
     Dates: start: 20210430
  42. SODIUM CHLORIDE [Concomitant]
     Active Substance: SODIUM CHLORIDE
     Indication: Nutritional supplementation
     Dates: start: 20210501, end: 20210505
  43. ALBUMIN HUMAN [Concomitant]
     Active Substance: ALBUMIN HUMAN
     Dates: start: 20210502, end: 20210504
  44. VITAMIN C [Concomitant]
     Active Substance: ASCORBIC ACID
     Dates: start: 20210506, end: 20210508
  45. LACTULOSE [Concomitant]
     Active Substance: LACTULOSE
     Route: 048
     Dates: start: 20210503, end: 20210509
  46. PANTOPRAZOLE [Concomitant]
     Active Substance: PANTOPRAZOLE
     Dates: start: 20210510
  47. PANCREATIN [Concomitant]
     Active Substance: PANCRELIPASE
     Dates: start: 20210510
  48. OMEGAVEN [Concomitant]
     Active Substance: FISH OIL
     Dates: start: 20210501, end: 20210505
  49. ALANYL GLUTAMINE [Concomitant]
     Active Substance: ALANYL GLUTAMINE
     Dates: start: 20210501, end: 20210505

REACTIONS (2)
  - Adenomyosis [Recovered/Resolved]
  - Gastric cancer [Recovered/Resolved]

NARRATIVE: CASE EVENT DATE: 20190221
